FAERS Safety Report 6056375-3 (Version None)
Quarter: 2009Q1

REPORT INFORMATION
  Report Type: 
  Country: None (occurrence: None)
  Receive Date: 20090129
  Receipt Date: 20090119
  Transmission Date: 20090719
  Serious: Yes (Death)
  Sender: FDA-Public Use
  Company Number: AU-WATSON-2009-00267

PATIENT
  Age: 69 Year
  Sex: Male

DRUGS (6)
  1. ETOPOSIDE [Suspect]
     Indication: NON-HODGKIN'S LYMPHOMA STAGE I
     Dosage: UNK
  2. PREDNISOLONE (WATSON LABORATORIES) [Suspect]
     Indication: NON-HODGKIN'S LYMPHOMA STAGE I
     Dosage: UNK
  3. RITUXIMAB [Suspect]
     Indication: NON-HODGKIN'S LYMPHOMA STAGE I
     Dosage: UNK
  4. MITOXANTRONE [Suspect]
     Indication: NON-HODGKIN'S LYMPHOMA STAGE I
     Dosage: UNK
  5. CYCLOPHOSPHAMIDE [Suspect]
     Indication: NON-HODGKIN'S LYMPHOMA STAGE I
     Dosage: UNK
  6. VINCRISTINE [Suspect]
     Indication: NON-HODGKIN'S LYMPHOMA STAGE I
     Dosage: UNK

REACTIONS (1)
  - HYPERAMMONAEMIC ENCEPHALOPATHY [None]
